FAERS Safety Report 7789868-9 (Version None)
Quarter: 2011Q3

REPORT INFORMATION
  Report Type: 
  Country: None (occurrence: None)
  Receive Date: 20110930
  Receipt Date: 20101001
  Transmission Date: 20111222
  Serious: No
  Sender: FDA-Public Use
  Company Number: US-ASTRAZENECA-2010SE39627

PATIENT
  Age: 59 Year
  Sex: Female
  Weight: 72.6 kg

DRUGS (5)
  1. METOPROLOL [Concomitant]
     Indication: ARRHYTHMIA
  2. ARIMIDEX [Suspect]
     Indication: BREAST CANCER
     Route: 048
     Dates: start: 20100501
  3. ANASTROZOLE [Suspect]
     Indication: BREAST CANCER
     Route: 048
     Dates: start: 20100701, end: 20100701
  4. PRAVASTATIN [Concomitant]
     Indication: HYPERCHOLESTEROLAEMIA
  5. CALCIUM WITH VITAMIN D [Concomitant]
     Indication: MEDICAL DIET

REACTIONS (11)
  - GAIT DISTURBANCE [None]
  - TACHYCARDIA [None]
  - INSOMNIA [None]
  - AGITATION [None]
  - ANXIETY [None]
  - CRYING [None]
  - FLUSHING [None]
  - SLEEP DISORDER [None]
  - DIZZINESS [None]
  - DRUG DOSE OMISSION [None]
  - DEPRESSED MOOD [None]
